FAERS Safety Report 20510238 (Version 5)
Quarter: 2022Q2

REPORT INFORMATION
  Report Type: Report from Study
  Country: FR (occurrence: FR)
  Receive Date: 20220224
  Receipt Date: 20220601
  Transmission Date: 20220721
  Serious: Yes (Life-Threatening, Hospitalization, Other)
  Sender: FDA-Public Use
  Company Number: FR-SA-SAC20220215001872

PATIENT
  Age: 89 Year
  Sex: Male
  Weight: 72 kg

DRUGS (38)
  1. DEXAMETHASONE [Suspect]
     Active Substance: DEXAMETHASONE
     Indication: Plasma cell myeloma refractory
     Route: 065
     Dates: start: 20020204, end: 20220211
  2. DEXAMETHASONE [Suspect]
     Active Substance: DEXAMETHASONE
     Route: 065
     Dates: start: 20220120, end: 20220126
  3. POMALIDOMIDE [Suspect]
     Active Substance: POMALIDOMIDE
     Indication: Plasma cell myeloma refractory
     Dosage: 0 MG, QD
     Route: 065
     Dates: start: 20220127, end: 20220131
  4. POMALIDOMIDE [Suspect]
     Active Substance: POMALIDOMIDE
     Dosage: 2 MG, QD
     Route: 065
     Dates: start: 20220203
  5. POMALIDOMIDE [Suspect]
     Active Substance: POMALIDOMIDE
     Dosage: 4 MG, QD
     Route: 065
     Dates: start: 20220201, end: 20220202
  6. POMALIDOMIDE [Suspect]
     Active Substance: POMALIDOMIDE
     Route: 065
     Dates: start: 20220120, end: 20220126
  7. POMALIDOMIDE [Suspect]
     Active Substance: POMALIDOMIDE
     Dosage: 4 MG, QD
     Route: 065
     Dates: start: 20220218, end: 20220310
  8. ISATUXIMAB [Suspect]
     Active Substance: ISATUXIMAB
     Indication: Plasma cell myeloma refractory
     Dosage: 10 MG/KG, QW
     Route: 065
     Dates: start: 20220120, end: 20220126
  9. ISATUXIMAB [Suspect]
     Active Substance: ISATUXIMAB
     Dosage: 0 MG/KG, QW
     Route: 065
     Dates: start: 20220127, end: 20220203
  10. ISATUXIMAB [Suspect]
     Active Substance: ISATUXIMAB
     Dosage: 10 MG/KG, QW
     Route: 065
     Dates: start: 20220204, end: 20220211
  11. ISATUXIMAB [Suspect]
     Active Substance: ISATUXIMAB
     Dosage: 10 MG/KG, QOW
     Route: 065
     Dates: start: 20220218, end: 20220304
  12. FUROSEMIDE [Concomitant]
     Active Substance: FUROSEMIDE
     Indication: Aortic valve incompetence
     Dates: start: 20220128, end: 20220202
  13. FUROSEMIDE [Concomitant]
     Active Substance: FUROSEMIDE
     Dates: start: 20220116
  14. PANTOPRAZOLE [Concomitant]
     Active Substance: PANTOPRAZOLE
     Indication: Gastrooesophageal reflux disease
     Route: 065
  15. PANTOPRAZOLE [Concomitant]
     Active Substance: PANTOPRAZOLE
     Route: 065
     Dates: start: 20220120
  16. RETACRIT [Concomitant]
     Active Substance: EPOETIN ALFA-EPBX
     Indication: Anaemia
     Dates: start: 20220128
  17. DEXAMETHASONE [Concomitant]
     Active Substance: DEXAMETHASONE
     Indication: Hypercalcaemia
     Route: 065
     Dates: start: 20220115, end: 20220118
  18. LOVENOX [Concomitant]
     Active Substance: ENOXAPARIN SODIUM
     Indication: Atrial fibrillation
     Dates: start: 20220116, end: 20220120
  19. LOVENOX [Concomitant]
     Active Substance: ENOXAPARIN SODIUM
     Dates: start: 20220128
  20. FAMOTIDINE [Concomitant]
     Active Substance: FAMOTIDINE
     Indication: Prophylaxis
     Dosage: UNK EVERY CYCLE
     Dates: start: 20220120
  21. BACTRIM [Concomitant]
     Active Substance: SULFAMETHOXAZOLE\TRIMETHOPRIM
     Indication: Infection prophylaxis
     Dates: start: 20220121, end: 20220127
  22. KARDEGIC [Concomitant]
     Active Substance: ASPIRIN DL-LYSINE
     Indication: Thrombosis prophylaxis
     Dates: start: 20220121, end: 20220127
  23. INSULIN NOS [Concomitant]
     Active Substance: INSULIN NOS
     Indication: Diabetes mellitus
     Dates: start: 20220116
  24. CYANOCOBALAMIN [Concomitant]
     Active Substance: CYANOCOBALAMIN
     Indication: Vitamin B12 deficiency
     Dates: start: 20220115
  25. BISOPROLOL [Concomitant]
     Active Substance: BISOPROLOL
     Indication: Aortic valve incompetence
     Route: 065
  26. POLARAMINE [Concomitant]
     Active Substance: DEXCHLORPHENIRAMINE MALEATE
     Indication: Prophylaxis
     Dosage: CYCLICAL
     Route: 065
     Dates: start: 20220120
  27. POLARAMINE [Concomitant]
     Active Substance: DEXCHLORPHENIRAMINE MALEATE
     Indication: Premedication
     Route: 065
     Dates: start: 20220128, end: 20220202
  28. CETIRIZINE [Concomitant]
     Active Substance: CETIRIZINE HYDROCHLORIDE
     Indication: Seasonal allergy
     Route: 065
     Dates: start: 20220115, end: 20220201
  29. ESCITALOPRAM [Concomitant]
     Active Substance: ESCITALOPRAM OXALATE
     Indication: Anxiety
  30. VALACYCLOVIR HYDROCHLORIDE [Concomitant]
     Active Substance: VALACYCLOVIR HYDROCHLORIDE
     Indication: Infection prophylaxis
     Dates: start: 20220121, end: 20220127
  31. VALACYCLOVIR HYDROCHLORIDE [Concomitant]
     Active Substance: VALACYCLOVIR HYDROCHLORIDE
     Dosage: UNK
     Dates: start: 20220205
  32. VALACYCLOVIR HYDROCHLORIDE [Concomitant]
     Active Substance: VALACYCLOVIR HYDROCHLORIDE
     Dates: start: 20220205
  33. NICARDIPINE [Concomitant]
     Active Substance: NICARDIPINE
     Indication: Anxiety
     Dates: start: 20220118, end: 20220121
  34. NICARDIPINE [Concomitant]
     Active Substance: NICARDIPINE
     Dosage: UNK
     Dates: start: 20220205
  35. NICARDIPINE [Concomitant]
     Active Substance: NICARDIPINE
     Dates: start: 20220205
  36. ACETAMINOPHEN [Concomitant]
     Active Substance: ACETAMINOPHEN
     Indication: Prophylaxis
     Dosage: CYCLICAL
     Route: 065
     Dates: start: 20220120
  37. RAPIVIR [VALACICLOVIR] [Concomitant]
     Indication: Infection prophylaxis
     Dates: start: 20220121, end: 20220127
  38. RAPIVIR [VALACICLOVIR] [Concomitant]
     Dates: start: 20220205

REACTIONS (8)
  - Neutropenia [Recovered/Resolved]
  - Neutropenia [Recovered/Resolved]
  - Neutropenia [Recovered/Resolved]
  - Neutropenia [Recovered/Resolved]
  - Neutropenia [Recovered/Resolved]
  - Neutropenia [Recovered/Resolved]
  - Neutropenia [Recovered/Resolved]
  - Pneumonia [Recovered/Resolved]

NARRATIVE: CASE EVENT DATE: 20220120
